FAERS Safety Report 5147893-0 (Version None)
Quarter: 2006Q4

REPORT INFORMATION
  Report Type: 
  Country: None (occurrence: None)
  Receive Date: 20061110
  Receipt Date: 20061103
  Transmission Date: 20070319
  Serious: Yes (Hospitalization)
  Sender: FDA-Public Use
  Company Number: FR-JNJFOC-20060705683

PATIENT
  Sex: Female

DRUGS (4)
  1. EPITOMAX [Suspect]
     Indication: DRUG EXPOSURE DURING PREGNANCY
  2. DEPAKENE [Suspect]
     Indication: DRUG EXPOSURE DURING PREGNANCY
  3. SPECIAFOLDINE [Concomitant]
     Indication: DRUG EXPOSURE DURING PREGNANCY
  4. SECTRAL [Concomitant]
     Indication: DRUG EXPOSURE DURING PREGNANCY

REACTIONS (3)
  - FOETAL ANTICONVULSANT SYNDROME [None]
  - STRIDOR [None]
  - VENTRICULAR SEPTAL DEFECT [None]
